FAERS Safety Report 15056671 (Version 2)
Quarter: 2018Q3

REPORT INFORMATION
  Report Type: Spontaneous
  Country: US (occurrence: US)
  Receive Date: 20180623
  Receipt Date: 20180709
  Transmission Date: 20181010
  Serious: Yes (Other)
  Sender: FDA-Public Use
  Company Number: US-OTSUKA-2018_015735

PATIENT
  Sex: Female

DRUGS (2)
  1. ABILIFY [Suspect]
     Active Substance: ARIPIPRAZOLE
     Indication: BIPOLAR DISORDER
     Dosage: 2?10 MG, QD
     Route: 065
     Dates: start: 200807, end: 201705
  2. ABILIFY [Suspect]
     Active Substance: ARIPIPRAZOLE
     Indication: MAJOR DEPRESSION

REACTIONS (9)
  - Emotional distress [Unknown]
  - Gambling disorder [Recovered/Resolved]
  - Personal relationship issue [Unknown]
  - Eating disorder [Recovered/Resolved]
  - Injury [Unknown]
  - Economic problem [Unknown]
  - Metabolic surgery [Unknown]
  - Drug dependence [Unknown]
  - Mental disorder [Unknown]
